FAERS Safety Report 6386642-5 (Version None)
Quarter: 2009Q4

REPORT INFORMATION
  Report Type: 
  Country: None (occurrence: None)
  Receive Date: 20091002
  Receipt Date: 20090920
  Transmission Date: 20100525
  Serious: Yes (Death, Other)
  Sender: FDA-Public Use
  Company Number: DE-PFIZER INC-2009271992

PATIENT
  Age: 39 Year

DRUGS (2)
  1. DOXEPIN HCL [Suspect]
     Indication: DEPRESSION
  2. DOXEPIN HCL [Suspect]
     Indication: INSOMNIA

REACTIONS (1)
  - DRUG TOXICITY [None]
